FAERS Safety Report 7428857-0 (Version None)
Quarter: 2011Q2

REPORT INFORMATION
  Report Type: 
  Country: None (occurrence: None)
  Receive Date: 20110421
  Receipt Date: 20110418
  Transmission Date: 20111010
  Serious: Yes (Death, Hospitalization, Other)
  Sender: FDA-Public Use
  Company Number: PHHY2010JP78867

PATIENT
  Age: 65 Year
  Sex: Male

DRUGS (24)
  1. CELLCEPT [Suspect]
     Dosage: 1000 MG
     Route: 048
     Dates: start: 20100303
  2. PREDONINE [Suspect]
     Indication: RENAL TRANSPLANT
     Dosage: UNK
     Route: 048
     Dates: start: 20100121, end: 20100211
  3. WARFARIN [Suspect]
  4. NEORAL [Suspect]
     Dosage: 200 MG, UNK
     Route: 048
     Dates: start: 20100216, end: 20100521
  5. PREDONINE [Suspect]
     Dosage: UNK
     Route: 048
     Dates: start: 20100220, end: 20100226
  6. DENOSINE [Suspect]
     Dosage: 125MG
     Route: 042
     Dates: start: 20100312, end: 20100323
  7. ASPIRIN [Suspect]
  8. NEORAL [Suspect]
     Indication: RENAL TRANSPLANT
     Dosage: 450 MG, UNK
     Route: 048
     Dates: start: 20100131, end: 20100209
  9. NEORAL [Suspect]
     Dosage: 225 MG, UNK
     Route: 048
     Dates: start: 20100210, end: 20100210
  10. CELLCEPT [Suspect]
     Dosage: 1500MG
     Route: 048
     Dates: start: 20100210, end: 20100302
  11. CELLCEPT [Suspect]
     Indication: RENAL TRANSPLANT
     Dosage: 1000 MG
     Route: 048
     Dates: start: 20100113, end: 20100209
  12. PREDONINE [Suspect]
     Dosage: UNK
     Route: 048
     Dates: start: 20100227, end: 20100401
  13. PREDONINE [Suspect]
     Dosage: UNK
     Route: 048
     Dates: start: 20100212, end: 20100213
  14. PREDONINE [Suspect]
     Dosage: UNK
     Route: 048
     Dates: start: 20100218, end: 20100219
  15. PREDONINE [Suspect]
     Dosage: UNK
     Route: 048
     Dates: start: 20100402
  16. DENOSINE [Suspect]
     Indication: CYTOMEGALOVIRUS INFECTION
     Dosage: 250MG
     Route: 042
     Dates: start: 20100303, end: 20100311
  17. NEORAL [Suspect]
     Dosage: 300 MG, UNK
     Route: 048
     Dates: start: 20100213, end: 20100215
  18. SIMULECT [Concomitant]
     Indication: RENAL TRANSPLANT
     Dosage: 20MG
     Route: 042
     Dates: start: 20100210, end: 20100214
  19. NEORAL [Suspect]
     Dosage: 450 MG, UNK
     Route: 048
     Dates: start: 20100211, end: 20100212
  20. SANDIMMUNE [Suspect]
     Indication: RENAL TRANSPLANT
     Dosage: 150 MG, UNK
     Route: 042
     Dates: start: 20100210, end: 20100210
  21. PREDONINE [Suspect]
     Dosage: UNK
     Route: 048
     Dates: start: 20100214, end: 20100217
  22. DENOSINE [Suspect]
     Dosage: 250MG
     Route: 042
     Dates: start: 20100427, end: 20100510
  23. SOL-MELCORT [Concomitant]
     Indication: RENAL TRANSPLANT
     Dosage: UNK
     Route: 042
     Dates: start: 20100210, end: 20100210
  24. RITUXAN [Concomitant]
     Dosage: 200 MG
     Route: 042
     Dates: start: 20100128, end: 20100128

REACTIONS (8)
  - CARDIAC FAILURE [None]
  - MELAENA [None]
  - GENERAL PHYSICAL HEALTH DETERIORATION [None]
  - URINE OUTPUT DECREASED [None]
  - PULMONARY OEDEMA [None]
  - WHITE BLOOD CELL COUNT DECREASED [None]
  - KIDNEY TRANSPLANT REJECTION [None]
  - CYTOMEGALOVIRUS INFECTION [None]
